FAERS Safety Report 8810396 (Version 1)
Quarter: 2012Q4

REPORT INFORMATION
  Report Type: Report from Study
  Country: DE (occurrence: DE)
  Receive Date: 20120926
  Receipt Date: 20120926
  Transmission Date: 20130627
  Serious: Yes (Hospitalization)
  Sender: FDA-Public Use
  Company Number: DE-009507513-1209DEU007262

PATIENT
  Age: 45 Year
  Sex: Male

DRUGS (5)
  1. VICTRELIS [Suspect]
     Indication: HEPATITIS C
     Dosage: UNK
     Route: 048
  2. PEGINTRON [Suspect]
     Indication: HEPATITIS C
     Dosage: 80 Microgram, qw
     Route: 058
     Dates: start: 20120727
  3. REBETOL [Suspect]
     Indication: HEPATITIS C
     Dosage: 1000 mg, bid
     Route: 048
     Dates: start: 20120727
  4. TRUVADA [Concomitant]
     Indication: HIV INFECTION
     Dosage: 1 tablet, qd
     Route: 048
     Dates: start: 20120724
  5. ISENTRESS [Concomitant]
     Indication: HIV INFECTION
     Dosage: 800 mg, qd
     Route: 048
     Dates: start: 20120724

REACTIONS (1)
  - Anaemia [Recovered/Resolved]
